FAERS Safety Report 9650553 (Version 3)
Quarter: 2013Q4

REPORT INFORMATION
  Report Type: Report from Study
  Country: DE (occurrence: DE)
  Receive Date: 20131029
  Receipt Date: 20131202
  Transmission Date: 20140711
  Serious: Yes (Life-Threatening, Hospitalization, Other)
  Sender: FDA-Public Use
  Company Number: DE-BIOGENIDEC-2013BI103037

PATIENT
  Age: 53 Year
  Sex: Male

DRUGS (6)
  1. TYSABRI [Suspect]
     Indication: RELAPSING-REMITTING MULTIPLE SCLEROSIS
     Route: 042
     Dates: start: 20070718
  2. SIMVISTATIN [Concomitant]
  3. PROPIVERINE [Concomitant]
  4. TAMSULOSIN [Concomitant]
  5. SIRDALUD [Concomitant]
  6. PANTOPRAZOLE [Concomitant]

REACTIONS (1)
  - Congestive cardiomyopathy [Recovered/Resolved with Sequelae]
